FAERS Safety Report 6860085-X (Version None)
Quarter: 2010Q3

REPORT INFORMATION
  Report Type: 
  Country: None (occurrence: None)
  Receive Date: 20100720
  Receipt Date: 20100716
  Transmission Date: 20110219
  Serious: Yes (Hospitalization)
  Sender: FDA-Public Use
  Company Number: FR-BRISTOL-MYERS SQUIBB COMPANY-15197650

PATIENT
  Age: 57 Year
  Sex: Female

DRUGS (2)
  1. TAXOL [Suspect]
     Indication: BREAST CANCER METASTATIC
     Dosage: 6MG/M2/D
     Route: 042
     Dates: start: 20090720, end: 20100201
  2. AVASTIN [Suspect]
     Indication: BREAST CANCER METASTATIC
     Dosage: STRENGTH: 25MG/ML;0.667MG/KG/D
     Route: 042
     Dates: start: 20090720, end: 20100201

REACTIONS (3)
  - ANGINA UNSTABLE [None]
  - EJECTION FRACTION DECREASED [None]
  - LEFT VENTRICULAR FAILURE [None]
